FAERS Safety Report 6538842-9 (Version None)
Quarter: 2010Q1

REPORT INFORMATION
  Report Type: 
  Country: None (occurrence: None)
  Receive Date: 20100115
  Receipt Date: 20100106
  Transmission Date: 20100710
  Serious: No
  Sender: FDA-Public Use
  Company Number: US-B.I. PHARMACEUTICALS,INC./RIDGEFIELD-2009-BP-14388BP

PATIENT
  Age: 74 Year
  Sex: Female

DRUGS (16)
  1. ZANTAC 150 [Suspect]
     Indication: GASTROOESOPHAGEAL REFLUX DISEASE
     Dosage: 300 MG
     Route: 048
     Dates: start: 20090901
  2. SYNTHROID [Concomitant]
     Indication: HYPOTHYROIDISM
     Dosage: 75 MCG
  3. SINGULAIR [Concomitant]
     Indication: ALLERGIC SINUSITIS
     Dosage: 10 MG
  4. FUROSEMIDE [Concomitant]
     Indication: HYPERTENSION
     Dosage: 20 MG
  5. AMLODIPINE [Concomitant]
     Indication: HYPERTENSION
     Dosage: 5 MG
  6. LISINOPRIL [Concomitant]
     Indication: HYPERTENSION
     Dosage: 20 MG
  7. ZOCOR [Concomitant]
     Dosage: 40 MG
  8. MELOXICAM [Concomitant]
     Dosage: 15 MG
  9. GLUCOSAMINE [Concomitant]
  10. COMPLETE VITAMIN [Concomitant]
  11. CALCIUM [Concomitant]
     Dosage: 1200 MG
  12. VITAMINE E [Concomitant]
     Dosage: 400 U
  13. FISH OIL [Concomitant]
     Dosage: 600 MG
  14. IBUPROFEN [Concomitant]
     Indication: PAIN
  15. TYLENOL (CAPLET) [Concomitant]
     Indication: PAIN
  16. RESTORIL [Concomitant]
     Indication: INSOMNIA

REACTIONS (1)
  - RASH PRURITIC [None]
